FAERS Safety Report 5482288-1 (Version None)
Quarter: 2007Q4

REPORT INFORMATION
  Report Type: 
  Country: None (occurrence: None)
  Receive Date: 20071011
  Receipt Date: 20071003
  Transmission Date: 20080405
  Serious: Yes (Other)
  Sender: FDA-Public Use
  Company Number: US-AMGEN-US246147

PATIENT
  Age: 35 Year
  Sex: Female

DRUGS (1)
  1. VECTIBIX [Suspect]
     Indication: COLORECTAL CANCER
     Route: 042
     Dates: start: 20070827, end: 20070827

REACTIONS (3)
  - HORDEOLUM [None]
  - LEUKOCYTOCLASTIC VASCULITIS [None]
  - NEOPLASM SKIN [None]
